FAERS Safety Report 6759088-5 (Version None)
Quarter: 2010Q2

REPORT INFORMATION
  Report Type: 
  Country: None (occurrence: None)
  Receive Date: 20100607
  Receipt Date: 20100528
  Transmission Date: 20101027
  Serious: Yes (Hospitalization)
  Sender: FDA-Public Use
  Company Number: US-ABBOTT-10P-163-0648047-00

PATIENT
  Sex: Male

DRUGS (2)
  1. ERYPED 400 [Suspect]
     Indication: GASTRIC DISORDER
     Dosage: 400MG DAILY
     Route: 048
     Dates: start: 20100101
  2. PREVACID [Suspect]
     Indication: GASTRIC DISORDER

REACTIONS (3)
  - BRONCHIAL DISORDER [None]
  - CROUP INFECTIOUS [None]
  - GASTROOESOPHAGEAL REFLUX DISEASE [None]
